FAERS Safety Report 5122411-1 (Version None)
Quarter: 2006Q4

REPORT INFORMATION
  Report Type: 
  Country: None (occurrence: None)
  Receive Date: 20061004
  Receipt Date: 20060918
  Transmission Date: 20070319
  Serious: Yes (Life-Threatening)
  Sender: FDA-Public Use
  Company Number: VER_0017_2006

PATIENT
  Age: 34 Year
  Sex: Female

DRUGS (2)
  1. TWINJECT [Suspect]
     Indication: HYPERSENSITIVITY
     Dosage: 1 U ONCE SC
     Route: 058
     Dates: start: 20060705, end: 20060705
  2. IMMUNOTHERAPY [Concomitant]

REACTIONS (2)
  - DEVICE MALFUNCTION [None]
  - PHARMACEUTICAL PRODUCT COMPLAINT [None]
